FAERS Safety Report 19172331 (Version 2)
Quarter: 2021Q2

REPORT INFORMATION
  Report Type: Report from Study
  Country: FR (occurrence: FR)
  Receive Date: 20210423
  Receipt Date: 20210524
  Transmission Date: 20210717
  Serious: Yes (Hospitalization)
  Sender: FDA-Public Use
  Company Number: FR-ROCHE-2810964

PATIENT
  Age: 62 Year
  Sex: Male
  Weight: 91 kg

DRUGS (3)
  1. ACTISKENAN [Concomitant]
     Active Substance: MORPHINE SULFATE
     Indication: BACK PAIN
     Route: 048
  2. ATEZOLIZUMAB. [Suspect]
     Active Substance: ATEZOLIZUMAB
     Indication: BLADDER CANCER
     Dosage: (12). ON 17/MAR/2021, RECEIVED MOST RECENT DOSE. CUMULATIVE  DOSE 14400 MG,?ON 19/MAY/2021, ATEZOLIZ
     Route: 041
     Dates: start: 20200728
  3. BCG [Suspect]
     Active Substance: BCG VACCINE
     Indication: BLADDER CANCER
     Dosage: DATE OF LAST ADMINISTRATION OF BCG (50 ML):  23/FEB/2021 (CUMULATIVE DOSE FROM D1C1 TO DATE OF LAST
     Route: 043
     Dates: start: 20200729

REACTIONS (1)
  - Post procedural fever [Recovered/Resolved]

NARRATIVE: CASE EVENT DATE: 20210406
